FAERS Safety Report 23850657 (Version 3)
Quarter: 2024Q3

REPORT INFORMATION
  Report Type: Spontaneous
  Country: US (occurrence: US)
  Receive Date: 20240513
  Receipt Date: 20240710
  Transmission Date: 20241017
  Serious: Yes (Other)
  Sender: NOVARTIS
  Company Number: US-002147023-NVSC2024US095278

PATIENT
  Age: 28 Year

DRUGS (1)
  1. KESIMPTA [Suspect]
     Active Substance: OFATUMUMAB
     Indication: Multiple sclerosis
     Dosage: UNK
     Route: 065

REACTIONS (9)
  - Multiple sclerosis [Unknown]
  - Illness [Unknown]
  - Influenza [Unknown]
  - Nasopharyngitis [Unknown]
  - Nausea [Unknown]
  - Headache [Unknown]
  - Somnolence [Unknown]
  - Hypoaesthesia [Unknown]
  - Paraesthesia [Unknown]
